FAERS Safety Report 10219644 (Version 1)
Quarter: 2014Q2

REPORT INFORMATION
  Report Type: Report from Study
  Country: BR (occurrence: BR)
  Receive Date: 20140605
  Receipt Date: 20140605
  Transmission Date: 20141212
  Serious: Yes (Other)
  Sender: FDA-Public Use
  Company Number: PHHY2014BR069016

PATIENT
  Sex: Male
  Weight: 75 kg

DRUGS (5)
  1. DIOVAN AMLO FIX [Suspect]
     Indication: HYPERTENSION
     Dosage: 1 TABLET (80/5 MG) DAILY
     Route: 048
  2. DIOVAN AMLO FIX [Suspect]
     Dosage: 80/5 MG, UNK
  3. SYMBICORT TU [Concomitant]
     Indication: ASTHMA
     Dosage: 1 DOSE (200 UG, AS REPORTED) DAILY
  4. FRONTAL [Concomitant]
     Indication: ANXIETY
     Dosage: 1 TABLET (0.5 MG) DAILY
  5. SOMALGIN [Concomitant]
     Indication: ANTICOAGULANT THERAPY
     Dosage: 1 TABLET (100 MG) DAILY

REACTIONS (3)
  - Coronary artery occlusion [Recovered/Resolved]
  - Angina pectoris [Recovered/Resolved]
  - Oedema peripheral [Recovered/Resolved]
